FAERS Safety Report 7644664-8 (Version None)
Quarter: 2011Q3

REPORT INFORMATION
  Report Type: 
  Country: None (occurrence: None)
  Receive Date: 20110729
  Receipt Date: 20110721
  Transmission Date: 20111222
  Serious: Yes (Other)
  Sender: FDA-Public Use
  Company Number: CO-BRACCO-000094

PATIENT
  Sex: Male

DRUGS (6)
  1. E-Z-PAQUE [Suspect]
     Indication: OESOPHAGRAM
     Route: 048
     Dates: start: 20110620, end: 20110620
  2. HEPARIN [Concomitant]
  3. E-Z-PAQUE [Suspect]
     Indication: TRACHEO-OESOPHAGEAL FISTULA
     Route: 048
     Dates: start: 20110620, end: 20110620
  4. MEROPENEM [Concomitant]
     Route: 042
  5. OMEPRAZOLE [Concomitant]
     Route: 042
  6. FLUCONAZOLE [Concomitant]
     Route: 042

REACTIONS (2)
  - ACUTE LUNG INJURY [None]
  - ASPIRATION [None]
